FAERS Safety Report 6055465-9 (Version None)
Quarter: 2009Q1

REPORT INFORMATION
  Report Type: 
  Country: None (occurrence: None)
  Receive Date: 20090128
  Receipt Date: 20090116
  Transmission Date: 20090719
  Serious: Yes (Death, Other)
  Sender: FDA-Public Use
  Company Number: US-WYE-H07322108

PATIENT
  Sex: Female
  Weight: 99.88 kg

DRUGS (2)
  1. PREMARIN [Suspect]
  2. PREMPRO [Suspect]

REACTIONS (1)
  - BREAST CANCER METASTATIC [None]
